FAERS Safety Report 10477562 (Version 1)
Quarter: 2014Q3

REPORT INFORMATION
  Report Type: Report from Study
  Country: US (occurrence: US)
  Receive Date: 20140926
  Receipt Date: 20140926
  Transmission Date: 20150326
  Serious: Yes (Hospitalization)
  Sender: FDA-Public Use
  Company Number: PHHO2014US012705

PATIENT
  Age: 59 Year

DRUGS (3)
  1. SOM230 [Suspect]
     Active Substance: PASIREOTIDE
     Dosage: UNK
     Route: 030
     Dates: start: 20110922
  2. GEMCITABINE [Suspect]
     Active Substance: GEMCITABINE\GEMCITABINE HYDROCHLORIDE
     Indication: PANCREATIC CARCINOMA METASTATIC
     Dosage: 1000 MG/M2, WEEKLYX3 THEN 1 WEEK OFF
     Route: 042
  3. SOM230 [Suspect]
     Active Substance: PASIREOTIDE
     Indication: PANCREATIC CARCINOMA METASTATIC
     Dosage: UNK
     Route: 030

REACTIONS (3)
  - Constipation [Recovered/Resolved]
  - Ascites [Recovered/Resolved]
  - Staphylococcal infection [Recovered/Resolved]

NARRATIVE: CASE EVENT DATE: 20110827
